FAERS Safety Report 7199847-0 (Version None)
Quarter: 2010Q4

REPORT INFORMATION
  Report Type: 
  Country: None (occurrence: None)
  Receive Date: 20101228
  Receipt Date: 20101222
  Transmission Date: 20110411
  Serious: Yes (Other)
  Sender: FDA-Public Use
  Company Number: FR-ROCHE-744241

PATIENT
  Age: 36 Year
  Sex: Female
  Weight: 117 kg

DRUGS (4)
  1. RIVOTRIL [Suspect]
     Dosage: IN THE EVENING
     Route: 065
     Dates: start: 20101102
  2. RIVOTRIL [Suspect]
     Route: 065
     Dates: end: 20101126
  3. LYRICA [Suspect]
     Route: 065
     Dates: start: 20101102
  4. LYRICA [Suspect]
     Route: 065
     Dates: start: 20101109

REACTIONS (1)
  - HEPATITIS [None]
